FAERS Safety Report 10005945 (Version 1)
Quarter: 2014Q1

REPORT INFORMATION
  Report Type: Spontaneous
  Country: US (occurrence: US)
  Receive Date: 20140313
  Receipt Date: 20140313
  Transmission Date: 20141002
  Serious: Yes (Hospitalization)
  Sender: FDA-Public Use
  Company Number: US-JNJFOC-20140302898

PATIENT
  Age: 32 Year
  Sex: Male
  Weight: 99.79 kg

DRUGS (2)
  1. INVOKANA [Suspect]
     Indication: PRODUCT USED FOR UNKNOWN INDICATION
     Route: 048
  2. INSULIN [Concomitant]

REACTIONS (3)
  - Diabetic ketoacidosis [Unknown]
  - Influenza [Unknown]
  - Treatment noncompliance [Unknown]
